FAERS Safety Report 9291342 (Version 1)
Quarter: 2013Q2

REPORT INFORMATION
  Report Type: Spontaneous
  Country: GR (occurrence: None)
  Receive Date: 20130513
  Receipt Date: 20130513
  Transmission Date: 20140414
  Serious: Yes (Other)
  Sender: FDA-Public Use
  Company Number: 2013AP005021

PATIENT
  Sex: Female
  Weight: 86 kg

DRUGS (1)
  1. FERRIPROX [Suspect]
     Indication: THALASSAEMIA
     Dates: start: 201206

REACTIONS (7)
  - Fatigue [None]
  - Overdose [None]
  - Pyrexia [None]
  - Chills [None]
  - Bone pain [None]
  - Somnolence [None]
  - Serum ferritin increased [None]
